FAERS Safety Report 4714495-7 (Version None)
Quarter: 2005Q3

REPORT INFORMATION
  Report Type: 
  Country: None (occurrence: None)
  Receive Date: 20050714
  Receipt Date: 20050627
  Transmission Date: 20060218
  Serious: Yes (Other)
  Sender: FDA-Public Use
  Company Number: PHBS2005BR09247

PATIENT
  Age: 2 Year
  Sex: Female

DRUGS (8)
  1. DEPAKENE [Suspect]
     Indication: CONVULSION
     Dosage: 5 ML, TID
     Route: 048
     Dates: start: 20050113
  2. SOLEBON [Suspect]
     Dosage: 1/2 TABLET BID
     Route: 048
     Dates: start: 20050113
  3. TEGRETOL [Suspect]
     Dosage: 5 ML, TID
     Route: 048
     Dates: start: 20050113
  4. PHENOBARBITAL [Concomitant]
  5. DIAZEPAM [Concomitant]
  6. VANCOMYCIN [Concomitant]
  7. METHADONE [Concomitant]
  8. LORAZEPAM [Concomitant]

REACTIONS (1)
  - AMAUROSIS [None]
